FAERS Safety Report 10272805 (Version 1)
Quarter: 2014Q2

REPORT INFORMATION
  Report Type: Spontaneous
  Country: TR (occurrence: None)
  Receive Date: 20140627
  Receipt Date: 20140627
  Transmission Date: 20141212
  Serious: Yes (Death)
  Sender: FDA-Public Use
  Company Number: VAL_03185_2014

PATIENT
  Age: 82 Year
  Sex: Male

DRUGS (1)
  1. BROMOCRIPTINE [Suspect]
     Indication: NEUROLEPTIC MALIGNANT SYNDROME

REACTIONS (2)
  - Treatment failure [None]
  - Pneumonia aspiration [None]
